FAERS Safety Report 5023070-9 (Version None)
Quarter: 2006Q2

REPORT INFORMATION
  Report Type: 
  Country: None (occurrence: None)
  Receive Date: 20060502
  Receipt Date: 20050728
  Transmission Date: 20061013
  Serious: Yes (Life-Threatening, Hospitalization, Other)
  Sender: FDA-Public Use
  Company Number: PHEH2005US04294

PATIENT
  Age: 56 Year
  Sex: Female
  Weight: 47.6 kg

DRUGS (4)
  1. LOTREL [Suspect]
     Indication: HYPERTENSION
     Dosage: 10 MG AML/20 MG BEN, QD, ORAL
     Route: 048
     Dates: start: 20050303, end: 20050407
  2. CLONIDINE [Concomitant]
  3. COREG (CARBEDILOL) [Concomitant]
  4. LIPITOR [Concomitant]

REACTIONS (6)
  - ANGIONEUROTIC OEDEMA [None]
  - OEDEMA [None]
  - PHARYNGEAL OEDEMA [None]
  - RESPIRATORY DISTRESS [None]
  - TONGUE OEDEMA [None]
  - TRACHEOSTOMY [None]
